FAERS Safety Report 7429190-3 (Version None)
Quarter: 2011Q2

REPORT INFORMATION
  Report Type: 
  Country: None (occurrence: None)
  Receive Date: 20110421
  Receipt Date: 20110414
  Transmission Date: 20111010
  Serious: Yes (Death, Other)
  Sender: FDA-Public Use
  Company Number: US-BAXTER-2011BH011530

PATIENT
  Age: 71 Year
  Sex: Male

DRUGS (5)
  1. METHYLPREDNISOLONE [Concomitant]
     Indication: PRODUCT USED FOR UNKNOWN INDICATION
     Route: 042
  2. HEPARIN SODIUM INJECTION [Suspect]
     Indication: COAGULOPATHY
     Route: 042
  3. CEFAZOLIN [Concomitant]
     Indication: PROPHYLAXIS
     Route: 042
  4. GENTAMICIN [Concomitant]
     Indication: PROPHYLAXIS
     Route: 042
  5. ASPIRIN [Concomitant]
     Indication: CAROTID BRUIT
     Route: 048

REACTIONS (8)
  - MYOCARDIAL INFARCTION [None]
  - ADRENAL INSUFFICIENCY [None]
  - ADRENAL HAEMORRHAGE [None]
  - NECROSIS [None]
  - HYPOTENSION [None]
  - RESPIRATORY DISTRESS [None]
  - HEPARIN-INDUCED THROMBOCYTOPENIA [None]
  - HYPOGLYCAEMIA [None]
